FAERS Safety Report 4355873-8 (Version None)
Quarter: 2004Q2

REPORT INFORMATION
  Report Type: 
  Country: None (occurrence: None)
  Receive Date: 20040510
  Receipt Date: 20040510
  Transmission Date: 20050107
  Serious: Yes (Hospitalization)
  Sender: FDA-Public Use
  Company Number: None

PATIENT
  Age: 73 Year
  Sex: Male
  Weight: 66.7 kg

DRUGS (10)
  1. DIGOXIN [Suspect]
     Indication: CARDIAC FAILURE CONGESTIVE
     Dosage: 0.125 MG DAILY ORAL
     Route: 048
  2. FLUVASTATIN NA (LESCOL) [Concomitant]
  3. GEMFIBROZIL [Concomitant]
  4. LISINOPRIL [Concomitant]
  5. METOPROLOL TARTRATE [Concomitant]
  6. ACETAMINOPHEN W/ CODEINE [Concomitant]
  7. ATROPINE 0.125/ DIPHENOXYLATE [Concomitant]
  8. CEPHALEXIN [Concomitant]
  9. PLAVIX [Concomitant]
  10. GLIPIZIDE [Concomitant]

REACTIONS (3)
  - DRUG TOXICITY [None]
  - NAUSEA [None]
  - VOMITING [None]
